FAERS Safety Report 6523298-2 (Version None)
Quarter: 2009Q4

REPORT INFORMATION
  Report Type: 
  Country: None (occurrence: None)
  Receive Date: 20091231
  Receipt Date: 20091221
  Transmission Date: 20100525
  Serious: No
  Sender: FDA-Public Use
  Company Number: US-JNJFOC-20090908501

PATIENT
  Sex: Male
  Weight: 54.43 kg

DRUGS (10)
  1. DURAGESIC-100 [Suspect]
     Indication: ABDOMINAL PAIN UPPER
     Route: 062
  2. DURAGESIC-100 [Suspect]
     Indication: ABDOMINAL PAIN
     Route: 062
  3. ACETYLSALICYLIC ACID [Concomitant]
     Indication: CARDIAC DISORDER
     Route: 065
  4. LISINOPRIL [Concomitant]
     Indication: BLOOD PRESSURE
     Route: 048
  5. SIMVASTATIN [Concomitant]
     Indication: BLOOD CHOLESTEROL
     Route: 048
  6. CYMBALTA [Concomitant]
     Indication: PAIN
     Route: 048
  7. PRILOSEC [Concomitant]
     Route: 048
  8. PLAVIX [Concomitant]
     Indication: BLOOD CHOLESTEROL
     Route: 048
  9. ELAVIL [Concomitant]
     Indication: NERVOUSNESS
     Route: 048
  10. ELAVIL [Concomitant]
     Indication: PAIN
     Route: 048

REACTIONS (4)
  - DRUG INEFFECTIVE [None]
  - INAPPROPRIATE SCHEDULE OF DRUG ADMINISTRATION [None]
  - PRODUCT QUALITY ISSUE [None]
  - WITHDRAWAL SYNDROME [None]
